FAERS Safety Report 11143127 (Version 1)
Quarter: 2015Q2

REPORT INFORMATION
  Report Type: Spontaneous
  Country: CA (occurrence: CA)
  Receive Date: 20150526
  Receipt Date: 20150526
  Transmission Date: 20150821
  Serious: Yes (Other)
  Sender: FDA-Public Use
  Company Number: CA-ROCHE-1575278

PATIENT
  Age: 62 Year
  Sex: Female

DRUGS (8)
  1. XOLAIR [Suspect]
     Active Substance: OMALIZUMAB
     Indication: ASTHMA
     Route: 058
     Dates: start: 20090205
  2. ZOPLICONE [Concomitant]
     Active Substance: ZOPICLONE
  3. GABAPENTIN. [Concomitant]
     Active Substance: GABAPENTIN
  4. PULMICORT TURBUHALER [Concomitant]
     Active Substance: BUDESONIDE
  5. SYMBICORT [Concomitant]
     Active Substance: BUDESONIDE\FORMOTEROL FUMARATE DIHYDRATE
  6. PREDNISONE. [Concomitant]
     Active Substance: PREDNISONE
  7. LEVOFLOXACIN. [Concomitant]
     Active Substance: LEVOFLOXACIN
     Route: 065
     Dates: start: 20110906
  8. SUPEUDOL [Concomitant]
     Active Substance: OXYCODONE HYDROCHLORIDE

REACTIONS (10)
  - Wrist fracture [Unknown]
  - Contusion [Unknown]
  - Arthralgia [Unknown]
  - Road traffic accident [Unknown]
  - Foot fracture [Unknown]
  - Rib fracture [Unknown]
  - Inflammation [Unknown]
  - Gait disturbance [Unknown]
  - Joint swelling [Unknown]
  - Chest pain [Unknown]

NARRATIVE: CASE EVENT DATE: 20150423
